FAERS Safety Report 22040973 (Version 1)
Quarter: 2023Q1

REPORT INFORMATION
  Report Type: Spontaneous
  Country: US (occurrence: None)
  Receive Date: 20230225
  Receipt Date: 20230225
  Transmission Date: 20230418
  Serious: Yes (Life-Threatening)
  Sender: FDA-Public Use
  Company Number: None

PATIENT
  Age: 22 Year
  Sex: Male
  Weight: 78.75 kg

DRUGS (1)
  1. FINASTERIDE [Suspect]
     Active Substance: FINASTERIDE
     Indication: Alopecia
     Dosage: FREQUENCY : DAILY;?
     Dates: start: 20221205, end: 20221215

REACTIONS (7)
  - Adverse drug reaction [None]
  - Suicidal ideation [None]
  - Erectile dysfunction [None]
  - Tinnitus [None]
  - Vision blurred [None]
  - Memory impairment [None]
  - Blood testosterone decreased [None]

NARRATIVE: CASE EVENT DATE: 20221215
